FAERS Safety Report 20330512 (Version 4)
Quarter: 2022Q1

REPORT INFORMATION
  Report Type: Spontaneous
  Country: FR (occurrence: FR)
  Receive Date: 20220113
  Receipt Date: 20220325
  Transmission Date: 20220423
  Serious: Yes (Life-Threatening, Hospitalization, Disabling)
  Sender: FDA-Public Use
  Company Number: FR-JNJFOC-20210831449

PATIENT
  Age: 42 Year
  Sex: Female

DRUGS (5)
  1. TREMFYA [Suspect]
     Active Substance: GUSELKUMAB
     Indication: Psoriasis
     Route: 058
     Dates: start: 20210807, end: 20211026
  2. TREMFYA [Suspect]
     Active Substance: GUSELKUMAB
     Indication: Pustular psoriasis
  3. TREMFYA [Suspect]
     Active Substance: GUSELKUMAB
     Indication: Palmoplantar pustulosis
  4. TREMFYA [Suspect]
     Active Substance: GUSELKUMAB
     Indication: Psoriasis
  5. COVID-19 VACCINE [Concomitant]
     Indication: COVID-19 immunisation
     Route: 058

REACTIONS (2)
  - Meningoencephalitis herpetic [Recovered/Resolved with Sequelae]
  - Vascular purpura [Recovered/Resolved]

NARRATIVE: CASE EVENT DATE: 20210810
